FAERS Safety Report 19454850 (Version 18)
Quarter: 2024Q3

REPORT INFORMATION
  Report Type: Spontaneous
  Country: US (occurrence: US)
  Receive Date: 20210623
  Receipt Date: 20240821
  Transmission Date: 20241016
  Serious: Yes (Other)
  Sender: PFIZER
  Company Number: US-PFIZER INC-2020328086

PATIENT
  Age: 55 Year
  Sex: Male
  Weight: 81.646 kg

DRUGS (1)
  1. EUCRISA [Suspect]
     Active Substance: CRISABOROLE
     Indication: Eczema
     Dosage: UNK (APPLY TO AFFECTED AREA OF HANDS AND FACE)
     Route: 061

REACTIONS (16)
  - Paralysis [Unknown]
  - Knee arthroplasty [Unknown]
  - Spinal disorder [Unknown]
  - Spinal operation [Unknown]
  - Bone cyst [Unknown]
  - Arthritis [Unknown]
  - Hypoacusis [Unknown]
  - Sensitivity to weather change [Unknown]
  - Peripheral swelling [Unknown]
  - Malaise [Unknown]
  - Seasonal allergy [Unknown]
  - Sinus disorder [Unknown]
  - Visual impairment [Unknown]
  - Hypersensitivity [Unknown]
  - Road traffic accident [Unknown]
  - Product dose omission issue [Unknown]
